FAERS Safety Report 9972421 (Version 1)
Quarter: 2014Q1

REPORT INFORMATION
  Report Type: Report from Study
  Country: US (occurrence: US)
  Receive Date: 20140306
  Receipt Date: 20140306
  Transmission Date: 20141002
  Serious: No
  Sender: FDA-Public Use
  Company Number: US-ABBVIE-13P-163-1153910-00

PATIENT
  Age: 34 Year
  Sex: Female

DRUGS (8)
  1. HUMIRA [Suspect]
     Indication: CROHN^S DISEASE
     Dates: start: 20130716
  2. VITAMIN B-12 [Concomitant]
     Indication: ANAEMIA
     Route: 050
  3. VITAMIN B-12 [Concomitant]
     Dosage: 5000 MCG EVERY DAY
     Route: 048
  4. NEURONTIN [Concomitant]
     Indication: BACK PAIN
     Dosage: 300 MG DAILY
  5. NEURONTIN [Concomitant]
     Indication: ARTHRITIS
  6. LISINOPRIL [Concomitant]
     Indication: HYPERTENSION
     Dosage: 20/12.5 EVERY DAY
  7. SONATA [Concomitant]
     Indication: INSOMNIA
     Dosage: AT BEDTIME
  8. TYLENOL [Concomitant]
     Indication: PRODUCT USED FOR UNKNOWN INDICATION

REACTIONS (3)
  - Injection site pain [Recovering/Resolving]
  - Injection site bruising [Recovering/Resolving]
  - Injection site pain [Recovering/Resolving]
